FAERS Safety Report 9224649 (Version 4)
Quarter: 2013Q2

REPORT INFORMATION
  Report Type: Spontaneous
  Country: US (occurrence: US)
  Receive Date: 20130411
  Receipt Date: 20130625
  Transmission Date: 20140414
  Serious: Yes (Hospitalization, Other)
  Sender: FDA-Public Use
  Company Number: US-SANOFI-AVENTIS-2013SA029242

PATIENT
  Age: 77 Year
  Sex: Female
  Weight: 73 kg

DRUGS (14)
  1. MULTAQ [Suspect]
     Indication: ATRIAL FIBRILLATION
     Route: 048
     Dates: start: 20130312
  2. LOSARTAN POTASSIUM [Suspect]
     Indication: ATRIAL FIBRILLATION
     Route: 048
     Dates: start: 20121102
  3. LOSARTAN POTASSIUM [Suspect]
     Indication: HYPERTENSION
     Route: 048
     Dates: start: 20121102
  4. LOSARTAN POTASSIUM [Suspect]
     Indication: ATRIAL FIBRILLATION
     Route: 048
  5. LOSARTAN POTASSIUM [Suspect]
     Indication: HYPERTENSION
     Route: 048
  6. WARFARIN [Suspect]
     Indication: PRODUCT USED FOR UNKNOWN INDICATION
     Route: 065
     Dates: end: 201303
  7. SYNTHROID [Suspect]
     Indication: PRODUCT USED FOR UNKNOWN INDICATION
     Route: 065
  8. AMIODARONE [Suspect]
     Dates: end: 201303
  9. CENTRUM SILVER [Concomitant]
  10. FISH OIL [Concomitant]
  11. VITAMIN D3 [Concomitant]
  12. ALL OTHER THERAPEUTIC PRODUCTS [Concomitant]
  13. MAGNESIUM [Concomitant]
  14. ASPIRIN [Concomitant]

REACTIONS (19)
  - Supraventricular extrasystoles [Unknown]
  - Tricuspid valve incompetence [Unknown]
  - Dilatation atrial [Unknown]
  - Sensory disturbance [Unknown]
  - Drug interaction [Unknown]
  - Blood pressure increased [Unknown]
  - Blood pressure decreased [Unknown]
  - Diplopia [Unknown]
  - Blood thyroid stimulating hormone increased [Not Recovered/Not Resolved]
  - Dehydration [Not Recovered/Not Resolved]
  - Dry mouth [Not Recovered/Not Resolved]
  - Thirst [Not Recovered/Not Resolved]
  - Accommodation disorder [Not Recovered/Not Resolved]
  - Vision blurred [Not Recovered/Not Resolved]
  - Blood glucose decreased [Not Recovered/Not Resolved]
  - Feeling cold [Not Recovered/Not Resolved]
  - Tremor [Not Recovered/Not Resolved]
  - Somnolence [Not Recovered/Not Resolved]
  - Asthenia [Not Recovered/Not Resolved]
